FAERS Safety Report 8903329 (Version 2)
Quarter: 2013Q2

REPORT INFORMATION
  Report Type: Spontaneous
  Country: IT (occurrence: IT)
  Receive Date: 20121112
  Receipt Date: 20130404
  Transmission Date: 20140414
  Serious: Yes (Other)
  Sender: FDA-Public Use
  Company Number: IT-PFIZER INC-2012276984

PATIENT
  Age: 68 Year
  Sex: Female

DRUGS (1)
  1. TRIATEC [Suspect]
     Indication: HYPERTENSION
     Dosage: 2.5 MG, DAILY
     Route: 048
     Dates: start: 20121003, end: 20121103

REACTIONS (2)
  - Abdominal pain upper [Recovering/Resolving]
  - Pancreatic enzymes increased [Recovering/Resolving]
